FAERS Safety Report 8587803-7 (Version None)
Quarter: 2012Q3

REPORT INFORMATION
  Report Type: 
  Country: None (occurrence: None)
  Receive Date: 20120813
  Receipt Date: 20120802
  Transmission Date: 20120928
  Serious: Yes (Hospitalization)
  Sender: FDA-Public Use
  Company Number: US-BIOGENIDEC-2012BI015753

PATIENT
  Age: 42 Year
  Sex: Female

DRUGS (2)
  1. AVONEX [Suspect]
     Indication: MULTIPLE SCLEROSIS
     Route: 030
     Dates: start: 19981101, end: 20070901
  2. AVONEX [Suspect]
     Route: 030
     Dates: start: 20100520

REACTIONS (6)
  - INJECTION SITE HAEMORRHAGE [None]
  - FALL [None]
  - FOOT FRACTURE [None]
  - ANKLE FRACTURE [None]
  - MUSCULOSKELETAL STIFFNESS [None]
  - MOBILITY DECREASED [None]
